FAERS Safety Report 24180354 (Version 1)
Quarter: 2024Q3

REPORT INFORMATION
  Report Type: Spontaneous
  Country: CN (occurrence: CN)
  Receive Date: 20240806
  Receipt Date: 20240806
  Transmission Date: 20241016
  Serious: Yes (Hospitalization, Other)
  Sender: NOVARTIS
  Company Number: CN-002147023-NVSC2024CN159093

PATIENT
  Age: 17 Year
  Sex: Female
  Weight: 47 kg

DRUGS (1)
  1. TEGRETOL [Suspect]
     Active Substance: CARBAMAZEPINE
     Indication: Muscle twitching
     Dosage: 200 MG, QD
     Route: 048
     Dates: start: 20240710, end: 20240730

REACTIONS (12)
  - Rash [Not Recovered/Not Resolved]
  - Drug eruption [Unknown]
  - Rash erythematous [Recovering/Resolving]
  - Erythema [Unknown]
  - Pruritus [Unknown]
  - Blister [Unknown]
  - Pain [Unknown]
  - Cyanosis [Unknown]
  - Mouth ulceration [Unknown]
  - Dry mouth [Unknown]
  - Dry eye [Unknown]
  - Alopecia [Unknown]

NARRATIVE: CASE EVENT DATE: 20240730
